APPROVED DRUG PRODUCT: VANCOCIN HYDROCHLORIDE
Active Ingredient: VANCOMYCIN HYDROCHLORIDE
Strength: EQ 500MG BASE/VIAL **Federal Register determination that product was not discontinued or withdrawn for safety or effectiveness reasons**
Dosage Form/Route: INJECTABLE;INJECTION
Application: A060180 | Product #001
Applicant: STERISCIENCE PTE LTD
Approved: Approved Prior to Jan 1, 1982 | RLD: No | RS: No | Type: DISCN